FAERS Safety Report 15770307 (Version 4)
Quarter: 2019Q2

REPORT INFORMATION
  Report Type: Spontaneous
  Country: US (occurrence: US)
  Receive Date: 20181228
  Receipt Date: 20190403
  Transmission Date: 20190711
  Serious: Yes (Other)
  Sender: FDA-Public Use
  Company Number: US-PFIZER INC-2018347088

PATIENT
  Age: 61 Year
  Sex: Female

DRUGS (1)
  1. XELJANZ [Suspect]
     Active Substance: TOFACITINIB CITRATE
     Indication: RHEUMATOID ARTHRITIS
     Dosage: 5 MG, 2X/DAY
     Route: 048
     Dates: start: 201704

REACTIONS (7)
  - Cystitis [Unknown]
  - Sensitivity to weather change [Unknown]
  - Therapeutic product effect decreased [Unknown]
  - Blood urine present [Unknown]
  - Product dose omission [Unknown]
  - Rheumatoid arthritis [Unknown]
  - Urinary tract infection [Unknown]
